FAERS Safety Report 23475004 (Version 1)
Quarter: 2024Q1

REPORT INFORMATION
  Report Type: Report from Study
  Country: US (occurrence: US)
  Receive Date: 20240204
  Receipt Date: 20240204
  Transmission Date: 20240410
  Serious: Yes (Other)
  Sender: FDA-Public Use
  Company Number: US-EXELIXIS-CABO-23068722

PATIENT
  Age: 39 Year
  Sex: Female

DRUGS (4)
  1. CABOMETYX [Suspect]
     Active Substance: CABOZANTINIB S-MALATE
     Indication: Solitary fibrous tumour
     Dosage: 40 MG, QD
     Route: 048
     Dates: start: 20230803, end: 20231120
  2. CITALOPRAM [Concomitant]
     Active Substance: CITALOPRAM HYDROBROMIDE
  3. IBUPROFEN [Concomitant]
     Active Substance: IBUPROFEN
  4. DIPHENHYDRAMINE HYDROCHLORIDE\LIDOCAINE HYDROCHLORIDE\NYSTATIN [Concomitant]
     Active Substance: DIPHENHYDRAMINE HYDROCHLORIDE\LIDOCAINE HYDROCHLORIDE\NYSTATIN

REACTIONS (8)
  - Malignant neoplasm progression [Unknown]
  - Stomatitis [Unknown]
  - Diarrhoea [Unknown]
  - Asthenia [Unknown]
  - Weight decreased [Unknown]
  - Arthralgia [Unknown]
  - Decreased appetite [Unknown]
  - Off label use [Unknown]

NARRATIVE: CASE EVENT DATE: 20230801
